FAERS Safety Report 24720079 (Version 2)
Quarter: 2024Q4

REPORT INFORMATION
  Report Type: Report from Study
  Country: RO (occurrence: RO)
  Receive Date: 20241211
  Receipt Date: 20241216
  Transmission Date: 20250114
  Serious: Yes (Hospitalization)
  Sender: CELLTRION
  Company Number: RO-CELLTRION INC.-2024RO026901

PATIENT

DRUGS (10)
  1. INFLIXIMAB-DYYB [Suspect]
     Active Substance: INFLIXIMAB-DYYB
     Indication: Rheumatoid arthritis
     Dosage: 120 MG/WEEK - LOADING
     Route: 058
     Dates: start: 20240912, end: 20240919
  2. LEFLUNOMIDE [Concomitant]
     Active Substance: LEFLUNOMIDE
     Indication: Rheumatoid arthritis
     Dosage: 20 MG, QD
     Route: 048
     Dates: start: 20161010
  3. PLAQUENIL [Concomitant]
     Active Substance: HYDROXYCHLOROQUINE SULFATE
     Indication: Rheumatoid arthritis
     Dosage: 400 MG, QD
     Route: 048
     Dates: start: 20161010
  4. SULFASALAZINE [Concomitant]
     Active Substance: SULFASALAZINE
     Indication: Rheumatoid arthritis
     Dosage: 2000 MG, QD
     Route: 048
     Dates: start: 20181123, end: 20240911
  5. AMLODIPINE [Concomitant]
     Active Substance: AMLODIPINE BESYLATE
     Indication: Hypertension
     Dosage: 10 MG, QD
     Route: 048
     Dates: start: 2016
  6. SPIRONOLACTONE [Concomitant]
     Active Substance: SPIRONOLACTONE
     Indication: Hypertension
     Dosage: 25 MG, QD
     Route: 048
     Dates: start: 2016
  7. ASPIRIN [Concomitant]
     Active Substance: ASPIRIN
     Indication: Transient ischaemic attack
     Dosage: 75 MG, QD
     Route: 048
     Dates: start: 2014
  8. ASPIRIN [Concomitant]
     Active Substance: ASPIRIN
     Indication: Peripheral ischaemia
  9. SYMBICORT [Concomitant]
     Active Substance: BUDESONIDE\FORMOTEROL FUMARATE DIHYDRATE
     Indication: Chronic obstructive pulmonary disease
     Dosage: 160 MICROGRAM, BID
     Route: 055
     Dates: start: 2016
  10. SPIRIVA [Concomitant]
     Active Substance: TIOTROPIUM BROMIDE MONOHYDRATE
     Indication: Chronic obstructive pulmonary disease
     Dosage: 18 MICROGRAM, QD
     Route: 055
     Dates: start: 2020

REACTIONS (2)
  - Injection site abscess [Not Recovered/Not Resolved]
  - Injection site necrosis [Not Recovered/Not Resolved]

NARRATIVE: CASE EVENT DATE: 20240922
